FAERS Safety Report 6609757-2 (Version None)
Quarter: 2010Q1

REPORT INFORMATION
  Report Type: 
  Country: None (occurrence: None)
  Receive Date: 20100224
  Receipt Date: 20100215
  Transmission Date: 20100710
  Serious: Yes (Other)
  Sender: FDA-Public Use
  Company Number: 2010SP009458

PATIENT
  Age: 45 Year
  Sex: Female

DRUGS (10)
  1. MIRTAZAPINE [Suspect]
     Indication: DEPRESSION
     Dosage: 15 MG; QD; PO, 30 MG; QD; PO
     Route: 048
     Dates: start: 20091119, end: 20091202
  2. MIRTAZAPINE [Suspect]
     Indication: DRUG INEFFECTIVE
     Dosage: 15 MG; QD; PO, 30 MG; QD; PO
     Route: 048
     Dates: start: 20091119, end: 20091202
  3. MIRTAZAPINE [Suspect]
     Indication: DEPRESSION
     Dosage: 15 MG; QD; PO, 30 MG; QD; PO
     Route: 048
     Dates: start: 20091203, end: 20091214
  4. MIRTAZAPINE [Suspect]
     Indication: DRUG INEFFECTIVE
     Dosage: 15 MG; QD; PO, 30 MG; QD; PO
     Route: 048
     Dates: start: 20091203, end: 20091214
  5. CLONAZEPAM [Concomitant]
  6. SODIUM VALPROATE [Concomitant]
  7. FLURAZEPAM HYDROCHLORIDE [Concomitant]
  8. LEVOMEPROMAZINE MALEATE [Concomitant]
  9. FLUNITRAZEPAM [Concomitant]
  10. PAXIL [Concomitant]

REACTIONS (2)
  - BLOOD CREATINE PHOSPHOKINASE INCREASED [None]
  - PARAESTHESIA [None]
